FAERS Safety Report 18136552 (Version 1)
Quarter: 2020Q3

REPORT INFORMATION
  Report Type: Report from Study
  Country: FR (occurrence: FR)
  Receive Date: 20200811
  Receipt Date: 20200811
  Transmission Date: 20201103
  Serious: Yes (Other)
  Sender: FDA-Public Use
  Company Number: FR-VIIV HEALTHCARE LIMITED-FR2020GSK152589

PATIENT
  Age: 37 Year
  Sex: Male

DRUGS (1)
  1. LAMIVUDINE. [Suspect]
     Active Substance: LAMIVUDINE
     Indication: CHRONIC HEPATITIS B
     Dosage: UNK

REACTIONS (5)
  - Drug resistance [Unknown]
  - Pathogen resistance [Unknown]
  - Treatment failure [Unknown]
  - Hepatitis B reactivation [Unknown]
  - Viral mutation identified [Unknown]
